FAERS Safety Report 21399285 (Version 1)
Quarter: 2022Q4

REPORT INFORMATION
  Report Type: Spontaneous
  Country: DE (occurrence: DE)
  Receive Date: 20221001
  Receipt Date: 20221001
  Transmission Date: 20230113
  Serious: Yes (Hospitalization)
  Sender: FDA-Public Use
  Company Number: DE-ADRED-07537-05

PATIENT
  Age: 67 Year
  Sex: Male

DRUGS (10)
  1. BISOPROLOL [Suspect]
     Active Substance: BISOPROLOL
     Indication: Product used for unknown indication
     Dosage: 10 MILLIGRAM DAILY; 5 MG, 1-0-1-0
  2. AKINETON [Concomitant]
     Active Substance: BIPERIDEN HYDROCHLORIDE
     Indication: Product used for unknown indication
     Dosage: 4 MILLIGRAM DAILY; 4 MG, 1-0-0-0
  3. RAMIPRIL [Concomitant]
     Active Substance: RAMIPRIL
     Indication: Product used for unknown indication
     Dosage: 5 MILLIGRAM DAILY; 5 MG, 1-0-0-0
  4. CETIRIZINE HYDROCHLORIDE [Concomitant]
     Active Substance: CETIRIZINE HYDROCHLORIDE
     Indication: Product used for unknown indication
     Dosage: 10 MILLIGRAM DAILY; 10 MG, 0-0-1-0
  5. LERCANIDIPINE [Concomitant]
     Active Substance: LERCANIDIPINE
     Indication: Product used for unknown indication
     Dosage: 10 MILLIGRAM DAILY; 10 MG, 1-0-0-0
  6. TORSEMIDE [Concomitant]
     Active Substance: TORSEMIDE
     Indication: Product used for unknown indication
     Dosage: 5 MILLIGRAM DAILY; 5 MG, 1-0-0-0
  7. MOXONIDINE [Concomitant]
     Active Substance: MOXONIDINE
     Indication: Product used for unknown indication
     Dosage: .4 MILLIGRAM DAILY; 0.2 MG, 1-0-1-0
  8. ABILIFY [Concomitant]
     Active Substance: ARIPIPRAZOLE
     Indication: Product used for unknown indication
     Dosage: 30 MILLIGRAM DAILY; 30 MG, 1-0-0-0 ABILIFY MYCITE 30MG SENSOR TABLET KIT
  9. MELPERONE [Concomitant]
     Active Substance: MELPERONE
     Indication: Product used for unknown indication
     Dosage: 50 MILLIGRAM DAILY; 50 MG, 0-0-1-0
  10. ALLOPURINOL [Concomitant]
     Active Substance: ALLOPURINOL
     Indication: Product used for unknown indication
     Dosage: 100 MILLIGRAM DAILY; 100 MG, 0-0-1-0

REACTIONS (3)
  - General physical health deterioration [Unknown]
  - Soft tissue infection [Unknown]
  - Pyrexia [Unknown]
